FAERS Safety Report 9040694 (Version 1)
Quarter: 2013Q1

REPORT INFORMATION
  Report Type: Report from Study
  Country: US (occurrence: US)
  Receive Date: 20130129
  Receipt Date: 20130129
  Transmission Date: 20140127
  Serious: No
  Sender: FDA-Public Use
  Company Number: US-ABBOTT-12P-163-0893637-00

PATIENT
  Age: 65 Year
  Sex: Female

DRUGS (1)
  1. HUMIRA 40 MG/0.8 ML PEN [Suspect]
     Indication: CROHN^S DISEASE
     Dates: start: 20111104

REACTIONS (3)
  - Oropharyngeal pain [Recovering/Resolving]
  - Cough [Recovering/Resolving]
  - Nasal congestion [Recovering/Resolving]
